FAERS Safety Report 16132353 (Version 1)
Quarter: 2019Q2

REPORT INFORMATION
  Report Type: Spontaneous
  Country: US (occurrence: US)
  Receive Date: 20190328
  Receipt Date: 20190328
  Transmission Date: 20190711
  Serious: Yes (Hospitalization)
  Sender: FDA-Public Use
  Company Number: None

PATIENT
  Age: 58 Year
  Sex: Male

DRUGS (2)
  1. REMICADE [Suspect]
     Active Substance: INFLIXIMAB
     Indication: COLITIS ULCERATIVE
     Dosage: ?          OTHER FREQUENCY:Q8W;?
     Route: 042
     Dates: start: 20180110
  2. NOT REPORTED [Concomitant]

REACTIONS (2)
  - Condition aggravated [None]
  - Hernia repair [None]

NARRATIVE: CASE EVENT DATE: 20190325
